FAERS Safety Report 7478824-6 (Version None)
Quarter: 2011Q2

REPORT INFORMATION
  Report Type: 
  Country: None (occurrence: None)
  Receive Date: 20110513
  Receipt Date: 20110502
  Transmission Date: 20111010
  Serious: No
  Sender: FDA-Public Use
  Company Number: FI-ASTRAZENECA-2011SE27619

PATIENT
  Age: 10947 Day
  Sex: Female

DRUGS (17)
  1. QUETIAPINE [Suspect]
     Route: 065
     Dates: start: 20110310, end: 20110316
  2. ABSENOR [Concomitant]
     Indication: PSYCHOTIC DISORDER
     Route: 048
     Dates: end: 20110322
  3. DUPHALAC [Concomitant]
     Dosage: 667 MG/ML
  4. RATIOGRASTIM [Concomitant]
     Dosage: 30 MIU/05 ML
  5. LORAZEPAM [Concomitant]
     Route: 048
  6. PERATSIN [Concomitant]
     Indication: PSYCHOTIC DISORDER
     Route: 048
     Dates: start: 20110310, end: 20110321
  7. LEVOZIN [Concomitant]
     Indication: INSOMNIA
     Route: 048
     Dates: start: 20110310, end: 20110318
  8. COLON SOFT [Concomitant]
  9. SEROQUEL XR [Suspect]
     Route: 048
  10. LORAZEPAM [Concomitant]
     Route: 048
  11. DIAPAM [Concomitant]
  12. DEPRAKINE [Concomitant]
  13. ATARAX [Concomitant]
     Route: 048
  14. PROPRAL [Concomitant]
  15. PEGORION [Concomitant]
     Route: 048
  16. ZIPRASIDONE HCL [Concomitant]
     Route: 048
  17. LAXORIN [Concomitant]
     Route: 048

REACTIONS (1)
  - GRANULOCYTOPENIA [None]
